FAERS Safety Report 4386602-X (Version None)
Quarter: 2004Q2

REPORT INFORMATION
  Report Type: 
  Country: None (occurrence: None)
  Receive Date: 20040629
  Receipt Date: 20040628
  Transmission Date: 20050107
  Serious: Yes (Other)
  Sender: FDA-Public Use
  Company Number: US-GLAXOSMITHKLINE-A0516233A

PATIENT
  Age: 78 Year
  Sex: Male

DRUGS (6)
  1. AVODART [Suspect]
     Indication: BENIGN PROSTATIC HYPERPLASIA
     Dosage: .5MG PER DAY
     Route: 048
  2. ZOCOR [Concomitant]
  3. HYDROCHLOROTHIAZIDE [Concomitant]
  4. DIGOXIN [Concomitant]
  5. CARDIZEM [Concomitant]
  6. SEREVENT [Concomitant]

REACTIONS (2)
  - EYE HAEMORRHAGE [None]
  - VISUAL DISTURBANCE [None]
